FAERS Safety Report 22323822 (Version 1)
Quarter: 2023Q2

REPORT INFORMATION
  Report Type: Spontaneous
  Country: US (occurrence: US)
  Receive Date: 20230516
  Receipt Date: 20230516
  Transmission Date: 20230721
  Serious: Yes (Hospitalization)
  Sender: FDA-Public Use
  Company Number: US-SANOFI-01609670

PATIENT

DRUGS (1)
  1. ELITEK [Suspect]
     Active Substance: RASBURICASE
     Dosage: UNK
     Route: 065
     Dates: end: 20230504

REACTIONS (1)
  - Blood uric acid decreased [Unknown]

NARRATIVE: CASE EVENT DATE: 20230510
